FAERS Safety Report 18131754 (Version 1)
Quarter: 2020Q3

REPORT INFORMATION
  Report Type: Report from Study
  Country: None (occurrence: US)
  Receive Date: 20200810
  Receipt Date: 20200810
  Transmission Date: 20201103
  Serious: Yes (Other)
  Sender: FDA-Public Use
  Company Number: US-ABBVIE-20K-163-3511758-00

PATIENT
  Sex: Female

DRUGS (1)
  1. VENCLEXTA [Suspect]
     Active Substance: VENETOCLAX
     Indication: CHRONIC LYMPHOCYTIC LEUKAEMIA
     Route: 048

REACTIONS (8)
  - Headache [Unknown]
  - Asthenia [Unknown]
  - Lumbar puncture [Unknown]
  - Lymphadenopathy [Unknown]
  - Dizziness [Unknown]
  - Mass [Unknown]
  - Disturbance in attention [Unknown]
  - Pain [Unknown]
